FAERS Safety Report 13736105 (Version 1)
Quarter: 2017Q3

REPORT INFORMATION
  Report Type: Spontaneous
  Country: BE (occurrence: BE)
  Receive Date: 20170710
  Receipt Date: 20170710
  Transmission Date: 20171127
  Serious: Yes (Hospitalization)
  Sender: FDA-Public Use
  Company Number: PHHY2012IE100669

PATIENT
  Sex: Female

DRUGS (1)
  1. DESERILA [Suspect]
     Active Substance: METHYSERGIDE MALEATE
     Route: 048

REACTIONS (1)
  - Aggression [Unknown]
